FAERS Safety Report 15372591 (Version 1)
Quarter: 2018Q3

REPORT INFORMATION
  Report Type: Spontaneous
  Country: JP (occurrence: JP)
  Receive Date: 20180911
  Receipt Date: 20180911
  Transmission Date: 20181010
  Serious: Yes (Other)
  Sender: FDA-Public Use
  Company Number: JP-BAXTER-2018BAX023327

PATIENT

DRUGS (1)
  1. SUPRANE [Suspect]
     Active Substance: DESFLURANE
     Indication: MAINTENANCE OF ANAESTHESIA
     Dosage: 4 ? 5% WITH AN ADMINISTRATION RATE OF 2 L /MIN
     Route: 055
     Dates: start: 20180815, end: 20180815

REACTIONS (3)
  - Unwanted awareness during anaesthesia [Recovered/Resolved]
  - Device issue [Recovered/Resolved]
  - Drug level decreased [Unknown]

NARRATIVE: CASE EVENT DATE: 20180815
